FAERS Safety Report 7918474-8 (Version None)
Quarter: 2011Q4

REPORT INFORMATION
  Report Type: 
  Country: None (occurrence: None)
  Receive Date: 20111114
  Receipt Date: 20111101
  Transmission Date: 20120403
  Serious: Yes (Life-Threatening, Hospitalization)
  Sender: FDA-Public Use
  Company Number: 2011MA016078

PATIENT
  Age: 80 Year
  Sex: Male

DRUGS (3)
  1. VALPROIC ACID [Concomitant]
  2. CITALOPRAM HYDROBROMIDE [Concomitant]
  3. DICLOFENAC SODIUM [Suspect]
     Indication: OSTEOARTHRITIS
     Dosage: 75 MG;BID;PO
     Route: 048
     Dates: start: 19950515

REACTIONS (1)
  - HEPATIC NEOPLASM MALIGNANT [None]
